FAERS Safety Report 19373174 (Version 1)
Quarter: 2021Q2

REPORT INFORMATION
  Report Type: Spontaneous
  Country: US (occurrence: US)
  Receive Date: 20210604
  Receipt Date: 20210604
  Transmission Date: 20210717
  Serious: Yes (Other)
  Sender: FDA-Public Use
  Company Number: US-PFIZER INC-2021264530

PATIENT
  Age: 72 Year
  Sex: Female

DRUGS (2)
  1. LYRICA [Suspect]
     Active Substance: PREGABALIN
     Indication: FIBROMYALGIA
     Dosage: 150 MG, 2X/DAY (TWO 150MG ONE DAY, ONLY TAKE ONE THE NEXT DAY)
  2. AMBIEN [Suspect]
     Active Substance: ZOLPIDEM TARTRATE
     Indication: SLEEP DISORDER
     Dosage: 5 MG

REACTIONS (3)
  - Fall [Unknown]
  - Wrist fracture [Unknown]
  - Lower limb fracture [Unknown]

NARRATIVE: CASE EVENT DATE: 2014
